FAERS Safety Report 14978099 (Version 4)
Quarter: 2018Q4

REPORT INFORMATION
  Report Type: Spontaneous
  Country: US (occurrence: US)
  Receive Date: 20180606
  Receipt Date: 20181126
  Transmission Date: 20190204
  Serious: No
  Sender: FDA-Public Use
  Company Number: US-PFIZER INC-2018228495

PATIENT
  Age: 60 Year
  Sex: Female

DRUGS (3)
  1. HYDROXYZINE PAMOATE. [Suspect]
     Active Substance: HYDROXYZINE PAMOATE
     Indication: CYSTITIS INTERSTITIAL
  2. TUMS 500 CALCIUM [Concomitant]
     Dosage: UNK
  3. HYDROXYZINE PAMOATE. [Suspect]
     Active Substance: HYDROXYZINE PAMOATE
     Indication: HYPERSENSITIVITY
     Dosage: 25 MG, 3-4 TIMES A DAY
     Dates: start: 201807

REACTIONS (6)
  - Gastric disorder [Unknown]
  - Drug ineffective [Not Recovered/Not Resolved]
  - Eructation [Unknown]
  - Diarrhoea [Unknown]
  - Abdominal discomfort [Not Recovered/Not Resolved]
  - Flatulence [Unknown]

NARRATIVE: CASE EVENT DATE: 201807
